FAERS Safety Report 8269379-7 (Version None)
Quarter: 2012Q2

REPORT INFORMATION
  Report Type: 
  Country: None (occurrence: None)
  Receive Date: 20120409
  Receipt Date: 20120209
  Transmission Date: 20120825
  Serious: Yes (Death, Hospitalization)
  Sender: FDA-Public Use
  Company Number: US-ROCHE-649906

PATIENT
  Sex: Female
  Weight: 87.1 kg

DRUGS (4)
  1. METFORMIN HYDROCHLORIDE [Concomitant]
     Indication: DIABETES MELLITUS
  2. CHLORTHALIDONE [Concomitant]
     Indication: HYPERTENSION
  3. CAPECITABINE [Suspect]
     Indication: BREAST CANCER
     Route: 048
     Dates: start: 20090702, end: 20090715
  4. GLICLAZIDE [Concomitant]
     Indication: DIABETES MELLITUS

REACTIONS (5)
  - HYPERGLYCAEMIA [None]
  - ANAEMIA [None]
  - DEATH [None]
  - GASTROINTESTINAL TOXICITY [None]
  - PLATELET COUNT DECREASED [None]
